FAERS Safety Report 12473106 (Version 1)
Quarter: 2016Q2

REPORT INFORMATION
  Report Type: Spontaneous
  Country: TW (occurrence: TW)
  Receive Date: 20160616
  Receipt Date: 20160616
  Transmission Date: 20160815
  Serious: Yes (Other)
  Sender: FDA-Public Use
  Company Number: TW-FRESENIUS KABI-FK201603683

PATIENT
  Age: 58 Year
  Sex: Male

DRUGS (5)
  1. BEVACIZUMAB [Suspect]
     Active Substance: BEVACIZUMAB
  2. CISPLATIN (MANUFACTURER UNKNOWN) [Suspect]
     Active Substance: CISPLATIN
     Indication: ADENOID CYSTIC CARCINOMA
     Route: 065
  3. CISPLATIN (MANUFACTURER UNKNOWN) [Suspect]
     Active Substance: CISPLATIN
     Indication: METASTASES TO LUNG
  4. MITOMYCIN. [Suspect]
     Active Substance: MITOMYCIN
     Indication: ADENOID CYSTIC CARCINOMA
  5. MITOMYCIN. [Suspect]
     Active Substance: MITOMYCIN
     Indication: METASTASES TO LUNG

REACTIONS (2)
  - Pigmentation disorder [Recovered/Resolved]
  - Tumour haemorrhage [Recovered/Resolved]
